FAERS Safety Report 19159217 (Version 1)
Quarter: 2021Q2

REPORT INFORMATION
  Report Type: Spontaneous
  Country: ES (occurrence: ES)
  Receive Date: 20210420
  Receipt Date: 20210420
  Transmission Date: 20210717
  Serious: Yes (Other)
  Sender: FDA-Public Use
  Company Number: ES-TEVA-2021-ES-1902625

PATIENT
  Age: 85 Year
  Sex: Male

DRUGS (12)
  1. HIDROFEROL 0,266 MG CAPSULAS BLANDAS ,10 CAPSULAS (BLISTER PVC/PVDC?AL [Concomitant]
     Dosage: 0.26MILLIGRAM
     Route: 048
     Dates: start: 20210108
  2. TAMSULOSINA CINFA 0,4 MG CAPSULAS DURAS DE LIBERACION MODIFICADA EFG , [Concomitant]
     Dosage: 0.4MILLIGRAM
     Route: 048
     Dates: start: 20201016
  3. MOXON 0,4 MG COMPRIMIDOS RECUBIERTOS CON PELICULA, 60 COMPRIMIDOS [Concomitant]
     Dosage: 0.4MILLIGRAM
     Route: 048
     Dates: start: 20120623
  4. ALOPURINOL CINFAMED 100 MG COMPRIMIDOS EFG, 100 COMPRIMIDOS [Concomitant]
     Indication: HYPERURICAEMIA
     Dosage: 100MILLIGRAM
     Route: 048
     Dates: start: 20190701
  5. SINTROM [Concomitant]
     Active Substance: ACENOCOUMAROL
     Route: 048
     Dates: start: 20180905
  6. SERETIDE 25 MICROGRAMOS/250 MICROGRAMOS/INHALACION,  SUSPENSION PARA I [Concomitant]
     Dosage: 2DOSAGEFORM
     Route: 055
     Dates: start: 20210108
  7. ALPRAZOLAM CINFA 0,25 MG COMPRIMIDOS EFG, 30 COMPRIMIDOS [Concomitant]
     Dosage: 0.5MILLIGRAM
     Route: 048
     Dates: start: 20130925
  8. MOXIFLOXACINO (1119A) [Suspect]
     Active Substance: MOXIFLOXACIN HYDROCHLORIDE
     Indication: BRONCHITIS
     Dosage: 400MILLIGRAM
     Route: 048
     Dates: start: 202103, end: 202103
  9. GABAPENTINA CINFA 400 MG CAPSULAS DURAS EFG , 90 CAPSULAS [Concomitant]
     Dosage: 400MILLIGRAM
     Route: 048
     Dates: start: 20200727
  10. LOSARTAN STADA 50 MG COMPRIMIDOS RECUBIERTOS CON PELICULA EFG, 28 COMP [Concomitant]
     Indication: HYPERTENSION
     Dosage: 50MILLIGRAM
     Route: 048
     Dates: start: 20210126
  11. SIMVASTATINA CINFA 20 MG COMPRIMIDOS RECUBIERTOS CON PELICULA EFG, 28 [Concomitant]
     Indication: DYSLIPIDAEMIA
     Dosage: 20MILLIGRAM
     Route: 048
     Dates: start: 20120525
  12. MANIDIPINO CINFA 20 MG COMPRIMIDOS EFG, 28 COMPRIMIDOS [Concomitant]
     Dosage: 20MILLIGRAM
     Route: 048
     Dates: start: 20201016

REACTIONS (5)
  - Circadian rhythm sleep disorder [Recovered/Resolved]
  - Visual impairment [Recovered/Resolved]
  - Agitation [Recovered/Resolved]
  - Delirium [Recovered/Resolved]
  - Disorientation [Recovered/Resolved]

NARRATIVE: CASE EVENT DATE: 20210326
